FAERS Safety Report 13097043 (Version 3)
Quarter: 2017Q1

REPORT INFORMATION
  Report Type: Spontaneous
  Country: US (occurrence: US)
  Receive Date: 20170109
  Receipt Date: 20170321
  Transmission Date: 20170428
  Serious: Yes (Other)
  Sender: FDA-Public Use
  Company Number: US-PFIZER INC-2017006122

PATIENT
  Age: 75 Year
  Sex: Female
  Weight: 53 kg

DRUGS (7)
  1. VFEND [Suspect]
     Active Substance: VORICONAZOLE
     Indication: INFECTION
  2. VFEND [Suspect]
     Active Substance: VORICONAZOLE
     Indication: INFLAMMATION
  3. VFEND [Suspect]
     Active Substance: VORICONAZOLE
     Indication: BRONCHIECTASIS
  4. VFEND [Suspect]
     Active Substance: VORICONAZOLE
     Indication: FUNGAL INFECTION
  5. VFEND [Suspect]
     Active Substance: VORICONAZOLE
     Indication: ASPERGILLUS INFECTION
  6. VFEND [Suspect]
     Active Substance: VORICONAZOLE
     Indication: LUNG DISORDER
     Dosage: 50 MG, 2X/DAY
     Route: 048
     Dates: start: 20160909, end: 20161213
  7. VFEND [Suspect]
     Active Substance: VORICONAZOLE
     Indication: BACTERIAL INFECTION

REACTIONS (3)
  - Multiple sclerosis [Unknown]
  - Immune system disorder [Unknown]
  - Drug ineffective [Not Recovered/Not Resolved]

NARRATIVE: CASE EVENT DATE: 20160909
